FAERS Safety Report 17511171 (Version 2)
Quarter: 2022Q2

REPORT INFORMATION
  Report Type: Report from Study
  Country: US (occurrence: US)
  Receive Date: 20200306
  Receipt Date: 20220513
  Transmission Date: 20220721
  Serious: No
  Sender: FDA-Public Use
  Company Number: US-HARMONY BIOSCIENCES-2020HMY00128

PATIENT
  Sex: Female

DRUGS (6)
  1. WAKIX [Suspect]
     Active Substance: PITOLISANT HYDROCHLORIDE
     Indication: Narcolepsy
     Dosage: 17.8 MG, 1X/DAY
     Route: 048
     Dates: start: 20200130
  2. WAKIX [Suspect]
     Active Substance: PITOLISANT HYDROCHLORIDE
     Indication: Cataplexy
  3. XYREM [Concomitant]
     Active Substance: SODIUM OXYBATE
  4. SCOPOLAMINE 3-DAY PATCH [Concomitant]
  5. CLARITIN [Concomitant]
     Active Substance: LORATADINE
  6. ADDERALL [Concomitant]
     Active Substance: AMPHETAMINE ASPARTATE\AMPHETAMINE SULFATE\DEXTROAMPHETAMINE SACCHARATE\DEXTROAMPHETAMINE SULFATE

REACTIONS (5)
  - Influenza [Recovered/Resolved]
  - Musculoskeletal stiffness [Unknown]
  - Vomiting [Unknown]
  - Malaise [Unknown]
  - Headache [Unknown]

NARRATIVE: CASE EVENT DATE: 20200101
